FAERS Safety Report 8133507 (Version 3)
Quarter: 2013Q3

REPORT INFORMATION
  Report Type: Report from Study
  Country: CO (occurrence: CO)
  Receive Date: 20110913
  Receipt Date: 20130906
  Transmission Date: 20140515
  Serious: Yes (Other)
  Sender: FDA-Public Use
  Company Number: PHHO2011CO14772

PATIENT
  Age: 77 Year
  Sex: Female
  Weight: 51.5 kg

DRUGS (3)
  1. ALISKIREN [Suspect]
     Indication: CARDIOVASCULAR DISORDER
     Dosage: 150 MG, UNK
     Route: 048
     Dates: start: 20110725
  2. NO TREATMENT RECEIVED [Suspect]
     Indication: CARDIOVASCULAR DISORDER
     Dosage: ACTIVE RUN-IN PHASE
  3. AMLODIPINE [Concomitant]
     Indication: CARDIOVASCULAR DISORDER
     Dosage: 5 MG, UNK
     Dates: start: 20110725

REACTIONS (1)
  - Renal failure [Recovered/Resolved]
